FAERS Safety Report 15394768 (Version 1)
Quarter: 2018Q3

REPORT INFORMATION
  Report Type: Spontaneous
  Country: DE (occurrence: DE)
  Receive Date: 20180918
  Receipt Date: 20180918
  Transmission Date: 20181010
  Serious: Yes (Life-Threatening, Disabling, Congenital Anomaly)
  Sender: FDA-Public Use
  Company Number: DE-DSJP-DSE-2018-140402

PATIENT

DRUGS (3)
  1. BISOPROLOL [Concomitant]
     Active Substance: BISOPROLOL
     Indication: PRODUCT USED FOR UNKNOWN INDICATION
  2. OLMESARTAN MEDOXOMIL. [Suspect]
     Active Substance: OLMESARTAN MEDOXOMIL
     Indication: EXPOSURE DURING PREGNANCY
     Dosage: 10 MG, QD
     Route: 064
  3. PROGESTERONE. [Concomitant]
     Active Substance: PROGESTERONE
     Indication: PRODUCT USED FOR UNKNOWN INDICATION

REACTIONS (7)
  - Premature baby [Unknown]
  - Exposure during pregnancy [Recovered/Resolved]
  - Atrial septal defect [Unknown]
  - Foetal growth restriction [Unknown]
  - Foetal heart rate abnormal [Unknown]
  - Umbilical hernia [Unknown]
  - Cardiac septal defect [Unknown]
